FAERS Safety Report 13813781 (Version 2)
Quarter: 2017Q3

REPORT INFORMATION
  Report Type: Spontaneous
  Country: US (occurrence: US)
  Receive Date: 20170731
  Receipt Date: 20170823
  Transmission Date: 20171127
  Serious: No
  Sender: FDA-Public Use
  Company Number: US-PFIZER INC-2017328210

PATIENT
  Age: 61 Year
  Sex: Female
  Weight: 62.59 kg

DRUGS (3)
  1. NEURONTIN [Suspect]
     Active Substance: GABAPENTIN
     Indication: COUGH
     Dosage: 900 MG, 2X/DAY
     Route: 048
     Dates: start: 20161115
  2. AMLODIPINE [Concomitant]
     Active Substance: AMLODIPINE BESYLATE
     Indication: HYPERTENSION
     Dosage: UNK
     Dates: start: 201512
  3. NEURONTIN [Suspect]
     Active Substance: GABAPENTIN
     Dosage: 900 MG, 2X/DAY
     Route: 048
     Dates: start: 20161111, end: 201703

REACTIONS (4)
  - Product use in unapproved indication [Unknown]
  - Stridor [Recovering/Resolving]
  - Sleep apnoea syndrome [Recovered/Resolved]
  - Snoring [Recovered/Resolved]

NARRATIVE: CASE EVENT DATE: 201611
